FAERS Safety Report 19586166 (Version 4)
Quarter: 2023Q1

REPORT INFORMATION
  Report Type: Spontaneous
  Country: JP (occurrence: JP)
  Receive Date: 20210721
  Receipt Date: 20230313
  Transmission Date: 20230418
  Serious: Yes (Hospitalization, Other)
  Sender: FDA-Public Use
  Company Number: JP-TAKEDA-2021TJP058721

PATIENT
  Age: 28 Year
  Sex: Male
  Weight: 58 kg

DRUGS (13)
  1. ENTYVIO [Suspect]
     Active Substance: VEDOLIZUMAB
     Indication: Colitis ulcerative
     Dosage: 300 MILLIGRAM, Q8WEEKS
     Route: 041
     Dates: start: 20191109
  2. ENTYVIO [Suspect]
     Active Substance: VEDOLIZUMAB
     Dosage: 300 MILLIGRAM, Q8WEEKS
     Route: 041
     Dates: start: 20201009
  3. ENTYVIO [Suspect]
     Active Substance: VEDOLIZUMAB
     Dosage: 300 MILLIGRAM, Q8WEEKS
     Route: 041
  4. IMURAN [Suspect]
     Active Substance: AZATHIOPRINE
     Indication: Product used for unknown indication
     Dosage: 50 MILLIGRAM
     Route: 065
     Dates: start: 20160520, end: 20191005
  5. IMURAN [Suspect]
     Active Substance: AZATHIOPRINE
     Dosage: 100 MILLIGRAM
     Route: 065
     Dates: start: 20191006, end: 20210703
  6. VONOPRAZAN FUMARATE [Concomitant]
     Active Substance: VONOPRAZAN FUMARATE
     Dosage: 10 MILLIGRAM
     Route: 065
     Dates: start: 20200411
  7. LIALDA [Concomitant]
     Active Substance: MESALAMINE
     Dosage: 4800 MILLIGRAM
     Route: 048
     Dates: start: 20170512
  8. BUDESONIDE [Concomitant]
     Active Substance: BUDESONIDE
     Dosage: 2 MILLIGRAM
     Route: 054
     Dates: start: 20200411, end: 20210305
  9. SULFASALAZINE [Concomitant]
     Active Substance: SULFASALAZINE
     Dosage: UNK
     Route: 065
     Dates: start: 201503
  10. SULFASALAZINE [Concomitant]
     Active Substance: SULFASALAZINE
     Dosage: UNK
     Route: 065
  11. PREDNISOLONE [Concomitant]
     Active Substance: PREDNISOLONE
     Dosage: 30 MILLIGRAM
     Route: 065
     Dates: start: 201601
  12. PREDNISOLONE [Concomitant]
     Active Substance: PREDNISOLONE
     Dosage: 25 MILLIGRAM
     Route: 065
     Dates: start: 201801
  13. PREDNISOLONE [Concomitant]
     Active Substance: PREDNISOLONE
     Dosage: 20 MILLIGRAM
     Route: 065
     Dates: start: 202002

REACTIONS (4)
  - Colitis ulcerative [Recovering/Resolving]
  - Cytomegalovirus enterocolitis [Recovering/Resolving]
  - Pneumonia [Recovering/Resolving]
  - Pyrexia [Recovering/Resolving]

NARRATIVE: CASE EVENT DATE: 20200201
